FAERS Safety Report 16658354 (Version 1)
Quarter: 2019Q3

REPORT INFORMATION
  Report Type: Spontaneous
  Country: BR (occurrence: BR)
  Receive Date: 20190801
  Receipt Date: 20190801
  Transmission Date: 20191004
  Serious: Yes (Other)
  Sender: FDA-Public Use
  Company Number: BR-BRISTOL-MYERS SQUIBB COMPANY-BMS-2019-074947

PATIENT
  Sex: Male

DRUGS (3)
  1. GLIFAGE XR [Suspect]
     Active Substance: METFORMIN HYDROCHLORIDE
     Indication: BLOOD GLUCOSE INCREASED
     Dosage: 2 DOSAGE FORM, BID (ONE TABLET IN MORNING AND ONE AT NIGHT)
     Route: 048
  2. QUETIAPINE. [Concomitant]
     Active Substance: QUETIAPINE
     Indication: OBSESSIVE-COMPULSIVE DISORDER
     Dosage: 25 MILLIGRAM
     Route: 065
  3. GLIFAGE XR [Suspect]
     Active Substance: METFORMIN HYDROCHLORIDE
     Indication: PRODUCT USED FOR UNKNOWN INDICATION
     Dosage: 4 DOSAGE FORM, BID (TWO TABLETS IN MORNING AND TWO AT NIGHT)
     Route: 048
     Dates: start: 2006

REACTIONS (2)
  - Immobile [Unknown]
  - Limb discomfort [Unknown]
